FAERS Safety Report 8312150-8 (Version None)
Quarter: 2012Q1

REPORT INFORMATION
  Report Type: 
  Country: None (occurrence: None)
  Receive Date: 20120315
  Receipt Date: 20110524
  Transmission Date: 20120608
  Serious: No
  Sender: FDA-Public Use
  Company Number: PHHY2011US44895

PATIENT
  Age: 46 Year
  Sex: Female
  Weight: 112.5 kg

DRUGS (1)
  1. GILENYA [Suspect]
     Indication: MULTIPLE SCLEROSIS
     Dosage: 0.5 MG, QD, ORAL
     Route: 048
     Dates: start: 20110520

REACTIONS (6)
  - ASTHENIA [None]
  - HEART RATE DECREASED [None]
  - FATIGUE [None]
  - GASTROOESOPHAGEAL REFLUX DISEASE [None]
  - DIZZINESS [None]
  - DIARRHOEA [None]
